FAERS Safety Report 18951678 (Version 4)
Quarter: 2024Q2

REPORT INFORMATION
  Report Type: Spontaneous
  Country: FR (occurrence: FR)
  Receive Date: 20210301
  Receipt Date: 20240413
  Transmission Date: 20240716
  Serious: Yes (Other)
  Sender: FDA-Public Use
  Company Number: FR-AFSSAPS-AN20210305

PATIENT
  Age: 71 Year
  Sex: Female
  Weight: 45 kg

DRUGS (17)
  1. ALLOPURINOL [Suspect]
     Active Substance: ALLOPURINOL
     Indication: Gout
     Dosage: 300 MILLIGRAM, ONCE A DAY
     Route: 048
     Dates: start: 20201203
  2. DOXORUBICIN [Suspect]
     Active Substance: DOXORUBICIN
     Indication: B-cell lymphoma
     Dosage: 70 MILLIGRAM, 3 WEEKS
     Route: 042
     Dates: start: 20201216, end: 20210515
  3. PREDNISOLONE [Suspect]
     Active Substance: PREDNISOLONE
     Indication: B-cell lymphoma
     Dosage: 360 MILLIGRAM, 21 DAYS
     Route: 048
     Dates: start: 20201211, end: 20210515
  4. VALACYCLOVIR HYDROCHLORIDE [Suspect]
     Active Substance: VALACYCLOVIR HYDROCHLORIDE
     Indication: Antiviral prophylaxis
     Dosage: 1000 MILLIGRAM, ONCE A DAY
     Route: 048
  5. CYTARABINE [Suspect]
     Active Substance: CYTARABINE
     Indication: B-cell lymphoma
     Dosage: 30 MILLIGRAM, 1 TOTAL
     Route: 037
     Dates: start: 20201216, end: 20201216
  6. CYCLOPHOSPHAMIDE [Suspect]
     Active Substance: CYCLOPHOSPHAMIDE
     Indication: B-cell lymphoma
     Dosage: 1070 MILLIGRAM, 3 WEEKS
     Route: 042
     Dates: start: 20201211
  7. AMITRIPTYLINE HYDROCHLORIDE [Suspect]
     Active Substance: AMITRIPTYLINE HYDROCHLORIDE
     Indication: Occipital neuralgia
     Dosage: 10 GTT DROPS, ONCE A DAY
     Route: 048
  8. METHYLPREDNISOLONE [Suspect]
     Active Substance: METHYLPREDNISOLONE
     Indication: B-cell lymphoma
     Dosage: 40 MILLIGRAM, 1 TOTAL
     Route: 037
     Dates: start: 20201216, end: 20201216
  9. METHOTREXATE [Suspect]
     Active Substance: METHOTREXATE
     Indication: B-cell lymphoma
     Dosage: 15 MILLIGRAM, 1 TOTAL
     Route: 037
     Dates: start: 20201216, end: 20201216
  10. METHOTREXATE [Suspect]
     Active Substance: METHOTREXATE
     Dosage: 2090 MILLIGRAM, 3 WEEKS
     Route: 042
     Dates: start: 20210106
  11. RETACRIT [Suspect]
     Active Substance: EPOETIN ALFA-EPBX
     Indication: Anaemia
     Dosage: 1 DOSAGE FORM, EVERY WEEK
     Route: 058
     Dates: start: 20201218
  12. RITUXIMAB [Suspect]
     Active Substance: RITUXIMAB
     Indication: Primary mediastinal large B-cell lymphoma
     Dosage: 500 MILLIGRAM, 3 WEEKS
     Route: 042
     Dates: start: 20201214
  13. VINCRISTINE SULFATE [Suspect]
     Active Substance: VINCRISTINE SULFATE
     Indication: B-cell lymphoma
     Dosage: 2 MILLIGRAM, 3 WEEKS
     Route: 042
     Dates: start: 20201211
  14. ATOVAQUONE [Suspect]
     Active Substance: ATOVAQUONE
     Indication: Antifungal prophylaxis
     Dosage: 1500 MILLIGRAM, ONCE A DAY (WELLVONE 750 MG / 5 ML, ORAL SUSPENSION IN SACHET-DOSE)
     Route: 048
  15. ATOVAQUONE [Suspect]
     Active Substance: ATOVAQUONE
     Indication: Antifungal prophylaxis
     Dosage: 1500 MILLIGRAM (WELLVONE 750 MG / 5 ML, ORAL SUSPENSION IN SACHET-DOSE)
     Route: 048
  16. FILGRASTIM [Suspect]
     Active Substance: FILGRASTIM
     Indication: Product used for unknown indication
     Dosage: 5 DOSAGE FORM, CYCLICAL
     Route: 058
     Dates: start: 20201216
  17. ONDANSETRON [Suspect]
     Active Substance: ONDANSETRON
     Indication: Nausea
     Dosage: 4 DOSAGE FORM, CYCLICAL
     Route: 048
     Dates: start: 20201211

REACTIONS (1)
  - Cerebellar stroke [Not Recovered/Not Resolved]

NARRATIVE: CASE EVENT DATE: 20210128
